FAERS Safety Report 14156988 (Version 1)
Quarter: 2017Q4

REPORT INFORMATION
  Report Type: Spontaneous
  Country: US (occurrence: None)
  Receive Date: 20171103
  Receipt Date: 20171103
  Transmission Date: 20180321
  Serious: No
  Sender: FDA-Public Use
  Company Number: None

PATIENT
  Sex: Female

DRUGS (1)
  1. BOTOX [Suspect]
     Active Substance: ONABOTULINUMTOXINA
     Dosage: 200 UNITS HEAD AND NECK AREA IN 31 SITES Q 3 MONTHS SC
     Dates: start: 20170627, end: 20170627

REACTIONS (1)
  - Hypersensitivity [None]
